FAERS Safety Report 16656341 (Version 1)
Quarter: 2019Q3

REPORT INFORMATION
  Report Type: Spontaneous
  Country: US (occurrence: US)
  Receive Date: 20190801
  Receipt Date: 20190801
  Transmission Date: 20191004
  Serious: No
  Sender: FDA-Public Use
  Company Number: US-PACIRA-201800093

PATIENT
  Age: 42 Year
  Sex: Male

DRUGS (1)
  1. EXPAREL [Suspect]
     Active Substance: BUPIVACAINE
     Indication: HIP SURGERY
     Dosage: 266 MG, SINGLE, FREQUENCY : SINGLE
     Route: 065
     Dates: start: 20180725, end: 20180725

REACTIONS (3)
  - Movement disorder [Not Recovered/Not Resolved]
  - Weight bearing difficulty [Not Recovered/Not Resolved]
  - Hypoaesthesia [Not Recovered/Not Resolved]
